FAERS Safety Report 8502216-1 (Version None)
Quarter: 2012Q2

REPORT INFORMATION
  Report Type: 
  Country: None (occurrence: None)
  Receive Date: 20120405
  Receipt Date: 20100505
  Transmission Date: 20120825
  Serious: Yes (Other)
  Sender: FDA-Public Use
  Company Number: PHHY2010US29676

PATIENT
  Age: 70 Year
  Sex: Female

DRUGS (2)
  1. SYNTHROID [Concomitant]
  2. RECLAST [Suspect]
     Dosage: UNK, INFUSION
     Dates: start: 20100424

REACTIONS (2)
  - WEIGHT INCREASED [None]
  - BLOOD PRESSURE INCREASED [None]
